FAERS Safety Report 8814448 (Version 1)
Quarter: 2012Q4

REPORT INFORMATION
  Report Type: 
  Country: JP (occurrence: JP)
  Receive Date: 20120928
  Receipt Date: 20120928
  Transmission Date: 20130627
  Serious: Yes (Hospitalization, Other)
  Sender: FDA-Public Use
  Company Number: JP-PFIZER INC-2012236447

PATIENT
  Age: 59 Year
  Sex: Male

DRUGS (6)
  1. SEIBULE [Suspect]
     Indication: DIABETES MELLITUS
     Dosage: 50 mg, 3x/day
     Route: 048
     Dates: start: 201207, end: 201208
  2. LIVALO [Concomitant]
     Dosage: UNK
  3. BLOPRESS [Concomitant]
     Dosage: UNK
  4. OLMETEC [Concomitant]
     Dosage: UNK
  5. PERSANTIN [Concomitant]
     Dosage: UNK
  6. ANOPROLIN [Concomitant]
     Dosage: UNK

REACTIONS (3)
  - Oedema [Unknown]
  - Liver disorder [Recovered/Resolved]
  - Jaundice [Recovered/Resolved]
